FAERS Safety Report 7609504-1 (Version None)
Quarter: 2011Q3

REPORT INFORMATION
  Report Type: 
  Country: None (occurrence: None)
  Receive Date: 20110714
  Receipt Date: 20110708
  Transmission Date: 20111222
  Serious: Yes (Death, Other)
  Sender: FDA-Public Use
  Company Number: JP-CEPHALON-2011003319

PATIENT
  Sex: Male
  Weight: 86 kg

DRUGS (5)
  1. PREDNISOLONE [Concomitant]
     Dates: end: 20110617
  2. BENDAMUSTINE HCL [Suspect]
     Indication: B-CELL LYMPHOMA
     Route: 042
     Dates: start: 20110207, end: 20110602
  3. FLUCONAZOLE [Concomitant]
  4. ACYCLOVIR [Concomitant]
     Dates: start: 20110217
  5. CARVEDILOL [Concomitant]

REACTIONS (10)
  - ARRHYTHMIA [None]
  - NEUTROPENIA [None]
  - FEBRILE NEUTROPENIA [None]
  - PYREXIA [None]
  - PLEURAL EFFUSION [None]
  - PNEUMONITIS [None]
  - NEUTROPHIL COUNT DECREASED [None]
  - CONSTIPATION [None]
  - CARDIAC FAILURE [None]
  - STOMATITIS [None]
